FAERS Safety Report 25703387 (Version 1)
Quarter: 2025Q3

REPORT INFORMATION
  Report Type: Spontaneous
  Country: EU (occurrence: EU)
  Receive Date: 20250820
  Receipt Date: 20250820
  Transmission Date: 20251020
  Serious: Yes (Hospitalization)
  Sender: ROCHE
  Company Number: None

PATIENT
  Age: 78 Year
  Sex: Female
  Weight: 51 kg

DRUGS (2)
  1. TOCILIZUMAB [Suspect]
     Active Substance: TOCILIZUMAB
     Indication: Giant cell arteritis
     Dosage: 1 WEEKLY
     Route: 058
     Dates: start: 20250604
  2. Prednisolon 75mg [Concomitant]
     Dates: start: 20250616

REACTIONS (4)
  - Melaena [Recovered/Resolved]
  - Small intestinal perforation [Recovered/Resolved]
  - Haemoglobin decreased [Recovered/Resolved]
  - Peritonitis [Recovered/Resolved]

NARRATIVE: CASE EVENT DATE: 20250628
